FAERS Safety Report 9016371 (Version 3)
Quarter: 2013Q1

REPORT INFORMATION
  Report Type: Report from Study
  Country: AU (occurrence: AU)
  Receive Date: 20130116
  Receipt Date: 20130321
  Transmission Date: 20140127
  Serious: Yes (Hospitalization, Other)
  Sender: FDA-Public Use
  Company Number: AU-TEVA-362289USA

PATIENT
  Age: 76 Year
  Sex: Female
  Weight: 89 kg

DRUGS (13)
  1. TREANDA [Suspect]
     Indication: B-CELL LYMPHOMA
     Dosage: CYCLIC
     Route: 042
     Dates: start: 20120308
  2. TREANDA [Suspect]
     Dosage: REGIMEN #2 CYCLIC
     Route: 042
     Dates: start: 20120705
  3. OBINTUZUMAB [Suspect]
     Indication: B-CELL LYMPHOMA
     Dosage: 1000MG/ML. TOTAL VOL 250MG Q 4 WEELS
     Dates: start: 20120308
  4. OBINTUZUMAB [Suspect]
     Dosage: 1000MG/ML. TOTAL VOL 250MG Q 4 WEELS
     Dates: start: 20120704
  5. CLEXANE [Concomitant]
     Indication: THROMBOSIS PROPHYLAXIS
     Dates: start: 20120314
  6. CLEXANE [Concomitant]
     Indication: THROMBOSIS
  7. PREDNISOLONE [Concomitant]
     Indication: INFUSION RELATED REACTION
     Dates: start: 20120308
  8. PREDNISOLONE [Concomitant]
     Indication: NAUSEA
  9. ONDANSETRON [Concomitant]
     Indication: INFUSION RELATED REACTION
     Dates: start: 20120308
  10. ONDANSETRON [Concomitant]
     Indication: NAUSEA
  11. SLOW-K [Concomitant]
     Indication: HYPOKALAEMIA
     Dates: start: 20120702
  12. WARFARIN [Concomitant]
     Dates: start: 20120503
  13. VITAMIN K [Concomitant]
     Indication: INTERNATIONAL NORMALISED RATIO INCREASED
     Dates: start: 20120707, end: 20120707

REACTIONS (3)
  - Eastern Cooperative Oncology Group performance status [Recovered/Resolved]
  - International normalised ratio increased [Recovered/Resolved]
  - Nausea [Recovered/Resolved]
